FAERS Safety Report 6696035-9 (Version None)
Quarter: 2010Q2

REPORT INFORMATION
  Report Type: 
  Country: None (occurrence: None)
  Receive Date: 20100426
  Receipt Date: 20100407
  Transmission Date: 20101027
  Serious: Yes (Death, Hospitalization, Other)
  Sender: FDA-Public Use
  Company Number: TR-BAYER-201021423GPV

PATIENT
  Age: 56 Year
  Sex: Male

DRUGS (13)
  1. FLUDARABINE [Suspect]
     Indication: CHRONIC LYMPHOCYTIC LEUKAEMIA
     Dosage: 2 CYCLES FLUDARABINE AND CYCLOPHOSPHAMIDE
     Route: 065
     Dates: start: 20060201
  2. FLUDARABINE [Suspect]
     Dosage: FLUDARABINE-MITOXANTRONE-DEXAMETHASONE REGIMEN
     Route: 065
     Dates: start: 20070401
  3. PREDNISOLONE [Suspect]
     Indication: CHRONIC LYMPHOCYTIC LEUKAEMIA
     Dates: start: 20060101
  4. PREDNISOLONE [Suspect]
     Dates: start: 20070101
  5. CYCLOPHOSPHAMIDE [Concomitant]
     Indication: CHRONIC LYMPHOCYTIC LEUKAEMIA
     Dosage: 2 CYCLES OF CYCLOPHOSPHAMIDE AND FLUDARABINE
     Route: 065
     Dates: start: 20060201
  6. CYCLOPHOSPHAMIDE [Concomitant]
     Dosage: CYCLOPHOSPHAMIDE-VINCRISTINE-PREDNISOLONE
     Route: 065
     Dates: start: 20060101
  7. VINCRISTINE [Concomitant]
     Indication: CHRONIC LYMPHOCYTIC LEUKAEMIA
     Dosage: CYCLOPHOSPHAMIDE-VINCRISTINE-PREDNISOLONE
     Route: 065
     Dates: start: 20060101
  8. MITOXANTRONE [Concomitant]
     Indication: CHRONIC LYMPHOCYTIC LEUKAEMIA
     Dosage: FLUDARABINE-MITOXANTRONE-DEXAMETHASONE
     Route: 065
     Dates: start: 20070401
  9. DEXAMETHASONE [Concomitant]
     Indication: CHRONIC LYMPHOCYTIC LEUKAEMIA
     Dosage: FLUDARABINE-MITOXANTRONE-DEXAMETHASONE
     Route: 065
     Dates: start: 20070401
  10. PIPERACILLIN [Concomitant]
     Route: 065
     Dates: start: 20070601
  11. TAZOBACTAM [Concomitant]
     Route: 065
     Dates: start: 20070601
  12. FLUCONAZOLE [Concomitant]
     Route: 065
     Dates: start: 20070601
  13. ACYCLOVIR [Concomitant]
     Route: 065
     Dates: start: 20070601

REACTIONS (7)
  - CHRONIC LYMPHOCYTIC LEUKAEMIA TRANSFORMATION [None]
  - ESCHERICHIA BACTERAEMIA [None]
  - GENERAL PHYSICAL HEALTH DETERIORATION [None]
  - INFECTION [None]
  - ORAL CANDIDIASIS [None]
  - ORAL HERPES [None]
  - PYREXIA [None]
